FAERS Safety Report 18905015 (Version 2)
Quarter: 2021Q1

REPORT INFORMATION
  Report Type: Report from Study
  Country: GB (occurrence: GB)
  Receive Date: 20210217
  Receipt Date: 20210227
  Transmission Date: 20210420
  Serious: Yes (Other)
  Sender: FDA-Public Use
  Company Number: NVSC2021GB030374

PATIENT
  Sex: Female

DRUGS (1)
  1. KISQALI [Suspect]
     Active Substance: RIBOCICLIB
     Indication: BREAST CANCER
     Dosage: 200 MG, TID
     Route: 048
     Dates: start: 20210122

REACTIONS (10)
  - Gastrooesophageal reflux disease [Recovering/Resolving]
  - Electrocardiogram QT shortened [Unknown]
  - Oropharyngeal pain [Not Recovered/Not Resolved]
  - Sinus bradycardia [Unknown]
  - Dyspepsia [Not Recovered/Not Resolved]
  - Insomnia [Not Recovered/Not Resolved]
  - Electrocardiogram T wave abnormal [Unknown]
  - Sinus arrhythmia [Unknown]
  - Fatigue [Not Recovered/Not Resolved]
  - Inappropriate schedule of product administration [Unknown]
